FAERS Safety Report 16097285 (Version 1)
Quarter: 2019Q1

REPORT INFORMATION
  Report Type: Spontaneous
  Country: US (occurrence: US)
  Receive Date: 20190320
  Receipt Date: 20190320
  Transmission Date: 20190418
  Serious: No
  Sender: FDA-Public Use
  Company Number: US-BIOGEN-2019BI00711170

PATIENT
  Sex: Female

DRUGS (1)
  1. PLEGRIDY [Suspect]
     Active Substance: PEGINTERFERON BETA-1A
     Indication: PRODUCT USED FOR UNKNOWN INDICATION
     Route: 065

REACTIONS (11)
  - Gait disturbance [Unknown]
  - Fatigue [Unknown]
  - Dysarthria [Unknown]
  - Asthenia [Unknown]
  - Malaise [Unknown]
  - Incoherent [Unknown]
  - Pain [Unknown]
  - Chills [Unknown]
  - Nasopharyngitis [Unknown]
  - Pyrexia [Unknown]
  - Dizziness [Unknown]
